FAERS Safety Report 6307319-8 (Version None)
Quarter: 2009Q3

REPORT INFORMATION
  Report Type: 
  Country: None (occurrence: None)
  Receive Date: 20090813
  Receipt Date: 20081106
  Transmission Date: 20100115
  Serious: Yes (Hospitalization)
  Sender: FDA-Public Use
  Company Number: JP-PFIZER INC-2008092772

PATIENT
  Age: 56 Year

DRUGS (5)
  1. PROVERA [Suspect]
  2. ESTRADIOL [Suspect]
  3. PLACEBO [Suspect]
     Indication: MENOPAUSAL SYMPTOMS
     Dosage: DAILY
     Route: 062
     Dates: start: 20080716, end: 20080909
  4. LIPITOR [Concomitant]
     Indication: HYPERLIPIDAEMIA
     Route: 048
     Dates: start: 20080603
  5. LAXOBERON [Concomitant]
     Route: 048
     Dates: start: 20081021, end: 20081021

REACTIONS (1)
  - COLONIC POLYP [None]
